FAERS Safety Report 25412165 (Version 1)
Quarter: 2025Q2

REPORT INFORMATION
  Report Type: Spontaneous
  Country: CA (occurrence: None)
  Receive Date: 20250609
  Receipt Date: 20250609
  Transmission Date: 20250717
  Serious: Yes (Other)
  Sender: ORION
  Company Number: CA-PFIZER INC-202500114954

PATIENT
  Age: 49 Year
  Sex: Female

DRUGS (2)
  1. METHOTREXATE [Suspect]
     Active Substance: METHOTREXATE
     Indication: Product used for unknown indication
     Dates: start: 2020, end: 2025
  2. SULFASALAZINE [Concomitant]
     Active Substance: SULFASALAZINE
     Dates: start: 2020

REACTIONS (1)
  - Chronic kidney disease [Unknown]
